FAERS Safety Report 25826814 (Version 2)
Quarter: 2025Q4

REPORT INFORMATION
  Report Type: Spontaneous
  Country: US (occurrence: None)
  Receive Date: 20250920
  Receipt Date: 20251024
  Transmission Date: 20260118
  Serious: Yes (Other)
  Sender: UCB
  Company Number: US-UCBSA-2025057627

PATIENT
  Age: 26 Year

DRUGS (1)
  1. CIMZIA [Suspect]
     Active Substance: CERTOLIZUMAB PEGOL
     Indication: Ankylosing spondylitis
     Dosage: 200 MILLIGRAM, EV 2 WEEKS(QOW)

REACTIONS (2)
  - Ankylosing spondylitis [Unknown]
  - Drug ineffective [Unknown]
